FAERS Safety Report 4723311-9 (Version None)
Quarter: 2005Q3

REPORT INFORMATION
  Report Type: 
  Country: None (occurrence: None)
  Receive Date: 20050719
  Receipt Date: 20041109
  Transmission Date: 20060218
  Serious: Yes (Hospitalization)
  Sender: FDA-Public Use
  Company Number: 207540

PATIENT
  Sex: Female
  Weight: 81.6475 kg

DRUGS (8)
  1. AVONEX [Suspect]
     Indication: MULTIPLE SCLEROSIS
     Dosage: 30 UG; QW; IM
     Route: 030
     Dates: start: 19970409, end: 20040101
  2. AVONEX [Suspect]
     Indication: MULTIPLE SCLEROSIS
     Dosage: 30 UG; QW; IM
     Route: 030
     Dates: start: 20040101, end: 20041001
  3. SERZONE [Concomitant]
  4. DETROL [Concomitant]
  5. PROTONIX [Concomitant]
  6. FOSAMAX [Concomitant]
  7. ADDERALL 10 [Concomitant]
  8. LACTULOSE [Concomitant]

REACTIONS (6)
  - CYSTITIS [None]
  - HEADACHE [None]
  - MULTIPLE SCLEROSIS RELAPSE [None]
  - PAIN IN EXTREMITY [None]
  - STOMACH DISCOMFORT [None]
  - URINARY TRACT INFECTION [None]
